FAERS Safety Report 5895571-2 (Version None)
Quarter: 2008Q3

REPORT INFORMATION
  Report Type: 
  Country: None (occurrence: None)
  Receive Date: 20080924
  Receipt Date: 20080115
  Transmission Date: 20090109
  Serious: No
  Sender: FDA-Public Use
  Company Number: US-ASTRAZENECA-2006UW07996

PATIENT
  Age: 488 Month
  Sex: Female
  Weight: 99.8 kg

DRUGS (4)
  1. SEROQUEL [Suspect]
     Indication: SLEEP DISORDER
     Route: 048
     Dates: start: 20040401, end: 20060101
  2. SEROQUEL [Suspect]
     Indication: SCHIZOPHRENIA
     Route: 048
     Dates: start: 20040401, end: 20060101
  3. CLOZARIL [Concomitant]
     Dosage: 5 TO 10 MG
     Dates: start: 20050401, end: 20060101
  4. RISPERDAL [Concomitant]
     Dates: start: 20050401, end: 20060101

REACTIONS (2)
  - DIABETES MELLITUS [None]
  - OBESITY [None]
